FAERS Safety Report 7064611-X (Version None)
Quarter: 2010Q4

REPORT INFORMATION
  Report Type: 
  Country: None (occurrence: None)
  Receive Date: 20101027
  Receipt Date: 20101020
  Transmission Date: 20110411
  Serious: Yes (Hospitalization, Other)
  Sender: FDA-Public Use
  Company Number: CA-JNJFOC-20101004428

PATIENT
  Age: 9 Year

DRUGS (2)
  1. RISPERIDONE [Suspect]
     Indication: PRODUCT USED FOR UNKNOWN INDICATION
     Route: 048
  2. UNKNOWN MEDICATION [Concomitant]
     Route: 065

REACTIONS (2)
  - CHEST PAIN [None]
  - LEFT VENTRICULAR HYPERTROPHY [None]
